FAERS Safety Report 8433965-1 (Version None)
Quarter: 2012Q2

REPORT INFORMATION
  Report Type: 
  Country: None (occurrence: None)
  Receive Date: 20120613
  Receipt Date: 20120604
  Transmission Date: 20120825
  Serious: Yes (Other)
  Sender: FDA-Public Use
  Company Number: PL-ROCHE-1075224

PATIENT
  Age: 45 Year
  Sex: Female

DRUGS (7)
  1. TAMOXIFEN CITRATE [Concomitant]
  2. VINORELBINE [Concomitant]
  3. EXEMESTANE [Concomitant]
  4. ANASTROZOLE [Concomitant]
  5. DOCETAXEL [Suspect]
     Indication: BREAST CANCER
  6. ZOLADEX [Concomitant]
  7. CAPECITABINE [Suspect]
     Indication: BREAST CANCER

REACTIONS (10)
  - NEUTROPENIA [None]
  - OEDEMA PERIPHERAL [None]
  - LEUKOPENIA [None]
  - METASTASES TO LIVER [None]
  - WEIGHT DECREASED [None]
  - THROMBOCYTOPENIA [None]
  - GENERAL PHYSICAL HEALTH DETERIORATION [None]
  - NAIL DISORDER [None]
  - ASTHENIA [None]
  - TUMOUR MARKER INCREASED [None]
